FAERS Safety Report 11915322 (Version 2)
Quarter: 2016Q1

REPORT INFORMATION
  Report Type: Report from Study
  Country: US (occurrence: US)
  Receive Date: 20160114
  Receipt Date: 20160117
  Transmission Date: 20160526
  Serious: No
  Sender: FDA-Public Use
  Company Number: US-AMGEN-USASL2016001650

PATIENT
  Age: 49 Year
  Sex: Female

DRUGS (1)
  1. ENBREL [Suspect]
     Active Substance: ETANERCEPT
     Indication: SPONDYLOARTHROPATHY
     Dosage: UNK UNK, QWK
     Route: 065
     Dates: start: 20151207

REACTIONS (13)
  - Injection site warmth [Unknown]
  - Back pain [Unknown]
  - Pelvic pain [Unknown]
  - Injection site erythema [Unknown]
  - Joint stiffness [Unknown]
  - Pain [Unknown]
  - Mobility decreased [Unknown]
  - Injection site pruritus [Unknown]
  - Erythema [Unknown]
  - Off label use [Unknown]
  - Injection site rash [Unknown]
  - Injection site reaction [Unknown]
  - Joint swelling [Unknown]

NARRATIVE: CASE EVENT DATE: 20151207
